FAERS Safety Report 7752181-X (Version None)
Quarter: 2011Q3

REPORT INFORMATION
  Report Type: 
  Country: None (occurrence: None)
  Receive Date: 20110915
  Receipt Date: 20110909
  Transmission Date: 20111222
  Serious: Yes (Other)
  Sender: FDA-Public Use
  Company Number: US-PFIZER INC-2011212925

PATIENT
  Age: 84 Year
  Sex: Male
  Weight: 77 kg

DRUGS (8)
  1. LIPITOR [Concomitant]
     Dosage: UNK
  2. AMLODIPINE BESILATE [Concomitant]
     Dosage: UNK
  3. ENALAPRIL MALEATE [Concomitant]
     Dosage: UNK
  4. METOPROLOL SUCCINATE [Concomitant]
     Dosage: UNK
  5. PROCRIT [Concomitant]
     Indication: RENAL FAILURE
     Dosage: ONE SHOT EVERY TWO WEEKS
  6. CORDARONE [Suspect]
     Indication: HEART RATE IRREGULAR
     Dosage: 200 MG, 1X/DAY
  7. CORDARONE [Suspect]
     Dosage: 100 MG, 1X/DAY
  8. NITROGLYCERIN [Concomitant]
     Dosage: UNK

REACTIONS (5)
  - PHOTOSENSITIVITY REACTION [None]
  - MUSCULAR WEAKNESS [None]
  - PARAESTHESIA [None]
  - GAIT DISTURBANCE [None]
  - OEDEMA PERIPHERAL [None]
